FAERS Safety Report 10013671 (Version 1)
Quarter: 2014Q1

REPORT INFORMATION
  Report Type: Spontaneous
  Country: US (occurrence: US)
  Receive Date: 20140315
  Receipt Date: 20140315
  Transmission Date: 20141002
  Serious: Yes (Other)
  Sender: FDA-Public Use
  Company Number: US-TEVA-468787USA

PATIENT
  Age: 48 Year
  Sex: Female
  Weight: 167.98 kg

DRUGS (1)
  1. PARAGARD 380A [Suspect]
     Indication: CONTRACEPTION
     Route: 015
     Dates: start: 20131202, end: 20140303

REACTIONS (1)
  - Device dislocation [Recovered/Resolved]
